FAERS Safety Report 8805643 (Version 2)
Quarter: 2012Q4

REPORT INFORMATION
  Report Type: 
  Country: GB (occurrence: GB)
  Receive Date: 20120924
  Receipt Date: 20121004
  Transmission Date: 20130627
  Serious: Yes (Other)
  Sender: FDA-Public Use
  Company Number: GB-VERTEX PHARMACEUTICAL INC.-000000000000000018

PATIENT
  Age: 53 Year
  Sex: Male
  Weight: 85 kg

DRUGS (12)
  1. VX-950 [Suspect]
     Indication: HEPATITIS C
     Dosage: 750 mg, UNK
     Route: 048
     Dates: start: 20110830, end: 20111118
  2. RIBAVIRIN [Suspect]
     Indication: HEPATITIS C
     Dosage: Dosage Form: Tablet
     Route: 048
     Dates: start: 20110830
  3. PEGINTERFERON ALFA-2A [Suspect]
     Indication: HEPATITIS C
     Dosage: Dosage Form: Unspecified
     Route: 065
     Dates: start: 20110830
  4. FLUOXETINE [Concomitant]
     Dosage: 20 mg, once every two days
     Route: 065
  5. FLUOXETINE [Concomitant]
     Dosage: Dosage Form: Unspecified
  6. PROPRANOLOL [Concomitant]
     Dosage: 20 mg, bid
     Route: 065
  7. PROPRANOLOL [Concomitant]
     Dosage: Dosage Form: Unspecified
  8. COD LIVER OIL [Concomitant]
     Dosage: UNK, qd
     Route: 048
  9. COD LIVER OIL [Concomitant]
     Dosage: Dosage Form: Tablet
     Route: 048
  10. ZINC [Concomitant]
     Dosage: UNK, qd
     Route: 048
  11. ZINC [Concomitant]
     Dosage: Dosage Form: Tablet
     Route: 048
  12. CYCLIZINE [Concomitant]
     Dosage: Dosage Form: Unspecified
     Route: 048
     Dates: start: 20110914

REACTIONS (2)
  - Drug eruption [Recovered/Resolved]
  - Face oedema [Recovered/Resolved]
